FAERS Safety Report 8245871-6 (Version None)
Quarter: 2012Q1

REPORT INFORMATION
  Report Type: 
  Country: None (occurrence: None)
  Receive Date: 20120327
  Receipt Date: 20120319
  Transmission Date: 20120608
  Serious: Yes (Hospitalization)
  Sender: FDA-Public Use
  Company Number: DKLU1077729

PATIENT
  Age: 66 Year
  Sex: Female

DRUGS (11)
  1. CARBATROL [Concomitant]
  2. DILANTIN [Concomitant]
  3. ONFI (CLOBAZAM) ( 5 MG, TABLET) [Suspect]
     Indication: EPILEPSY
     Dosage: 5;10 MG, 2 IN 1 D, ORAL
     Route: 048
     Dates: start: 20120213
  4. TOPAMAX [Concomitant]
  5. TRILEPTAL [Concomitant]
  6. PHENOBARBITAL TAB [Concomitant]
  7. DEPAKOTE [Concomitant]
  8. TEGRETOL [Concomitant]
  9. ZONEGRAN (ZONISAMIDE)Q [Concomitant]
  10. GABAPENTIN [Concomitant]
  11. KEPPRA [Concomitant]

REACTIONS (3)
  - DYSARTHRIA [None]
  - DYSPNOEA [None]
  - COUGH [None]
